FAERS Safety Report 25184001 (Version 4)
Quarter: 2025Q2

REPORT INFORMATION
  Report Type: Spontaneous
  Country: CO (occurrence: CO)
  Receive Date: 20250410
  Receipt Date: 20250428
  Transmission Date: 20250716
  Serious: Yes (Hospitalization, Other)
  Sender: BAYER HEALTHCARE PHARMACEUTICALS INC.
  Company Number: CO-BAYER-2025A048051

PATIENT
  Age: 61 Year
  Sex: Male

DRUGS (1)
  1. NEXAVAR [Suspect]
     Active Substance: SORAFENIB
     Indication: Benign hepatic neoplasm
     Dosage: 200 MG, BID
     Route: 048
     Dates: start: 202310

REACTIONS (5)
  - Hepatic encephalopathy [Recovered/Resolved]
  - Hepatic cirrhosis [Recovering/Resolving]
  - Incoherent [Recovering/Resolving]
  - Product use issue [None]
  - Product use in unapproved indication [None]

NARRATIVE: CASE EVENT DATE: 20231001
